FAERS Safety Report 7594155-8 (Version None)
Quarter: 2011Q3

REPORT INFORMATION
  Report Type: 
  Country: None (occurrence: None)
  Receive Date: 20110706
  Receipt Date: 20110524
  Transmission Date: 20111222
  Serious: Yes (Death, Other)
  Sender: FDA-Public Use
  Company Number: US-BAXTER-2010BH003416

PATIENT
  Age: 67 Year
  Sex: Female
  Weight: 71 kg

DRUGS (51)
  1. HEPARIN SODIUM INJECTION [Suspect]
     Route: 040
     Dates: start: 20080110
  2. HEPARIN SODIUM INJECTION [Suspect]
     Route: 042
     Dates: start: 20080115
  3. CLEOCIN HYDROCHLORIDE [Concomitant]
     Indication: PRODUCT USED FOR UNKNOWN INDICATION
     Route: 065
  4. PANTOPRAZOLE [Concomitant]
     Indication: PRODUCT USED FOR UNKNOWN INDICATION
     Route: 065
  5. VALIUM [Concomitant]
     Indication: PRODUCT USED FOR UNKNOWN INDICATION
     Route: 065
  6. PREDNISONE [Concomitant]
     Indication: PRODUCT USED FOR UNKNOWN INDICATION
     Route: 048
  7. HEPARIN SODIUM INJECTION [Suspect]
     Indication: CENTRAL VENOUS CATHETERISATION
     Route: 042
     Dates: start: 20071214
  8. HEPARIN SODIUM INJECTION [Suspect]
     Route: 040
     Dates: start: 20080110
  9. CARDIZEM CD [Concomitant]
     Indication: PRODUCT USED FOR UNKNOWN INDICATION
     Route: 065
  10. ASPIRIN [Concomitant]
     Indication: PRODUCT USED FOR UNKNOWN INDICATION
     Route: 065
  11. COREG [Concomitant]
     Indication: PRODUCT USED FOR UNKNOWN INDICATION
     Route: 048
  12. HEPARIN SODIUM INJECTION [Suspect]
     Indication: CATHETERISATION CARDIAC
     Route: 042
     Dates: start: 20071214
  13. HEPARIN SODIUM INJECTION [Suspect]
     Indication: DEEP VEIN THROMBOSIS
     Route: 042
     Dates: start: 20071214
  14. HEPARIN SODIUM INJECTION [Suspect]
     Route: 040
     Dates: start: 20080110
  15. HEPARIN SODIUM INJECTION [Suspect]
     Route: 042
     Dates: start: 20080115
  16. HEPARIN SODIUM INJECTION [Suspect]
     Route: 042
     Dates: start: 20080115
  17. ATROPINE [Concomitant]
     Indication: PRODUCT USED FOR UNKNOWN INDICATION
     Route: 065
  18. HEPARIN SODIUM INJECTION [Suspect]
     Route: 040
     Dates: start: 20080111
  19. HEPARIN SODIUM INJECTION [Suspect]
     Route: 040
     Dates: start: 20080111
  20. HEPARIN SODIUM INJECTION [Suspect]
     Route: 042
     Dates: start: 20080115
  21. HYDROCHLOROTHIAZIDE [Concomitant]
     Indication: PRODUCT USED FOR UNKNOWN INDICATION
     Route: 065
  22. METOPROLOL TARTRATE [Concomitant]
     Indication: PRODUCT USED FOR UNKNOWN INDICATION
     Route: 065
  23. MORPHINE [Concomitant]
     Indication: PAIN
     Route: 065
  24. ZOFRAN [Concomitant]
     Indication: PAIN
     Route: 065
  25. HEPARIN SODIUM INJECTION [Suspect]
     Indication: STENT PLACEMENT
     Route: 042
     Dates: start: 20071214
  26. HEPARIN SODIUM INJECTION [Suspect]
     Route: 040
     Dates: start: 20080110
  27. HEPARIN SODIUM INJECTION [Suspect]
     Route: 042
     Dates: start: 20080111
  28. HEPARIN SODIUM INJECTION [Suspect]
     Route: 040
     Dates: start: 20080111
  29. HEPARIN SODIUM 5,000 UNITS IN DEXTROSE 5% [Suspect]
     Indication: DEEP VEIN THROMBOSIS
     Route: 041
     Dates: start: 20080110, end: 20080110
  30. BACITRACIN [Concomitant]
     Indication: PRODUCT USED FOR UNKNOWN INDICATION
     Route: 065
  31. FENTANYL [Concomitant]
     Indication: PRODUCT USED FOR UNKNOWN INDICATION
     Route: 065
  32. INTEGRILIN [Concomitant]
     Indication: PRODUCT USED FOR UNKNOWN INDICATION
     Route: 065
  33. XANAX [Concomitant]
     Indication: PRODUCT USED FOR UNKNOWN INDICATION
     Route: 065
  34. HEPARIN SODIUM INJECTION [Suspect]
     Route: 040
     Dates: start: 20080110
  35. HEPARIN SODIUM INJECTION [Suspect]
     Route: 042
     Dates: start: 20080111
  36. HEPARIN SODIUM INJECTION [Suspect]
     Route: 042
     Dates: start: 20080111
  37. PLAVIX [Concomitant]
     Indication: PRODUCT USED FOR UNKNOWN INDICATION
     Route: 065
  38. POTASSIUM CHLORIDE [Concomitant]
     Indication: PRODUCT USED FOR UNKNOWN INDICATION
     Route: 048
  39. HEPARIN SODIUM INJECTION [Suspect]
     Indication: VENA CAVA FILTER INSERTION
     Route: 042
     Dates: start: 20071214
  40. HEPARIN SODIUM INJECTION [Suspect]
     Route: 042
     Dates: start: 20080111
  41. HEPARIN SODIUM INJECTION [Suspect]
     Route: 042
     Dates: start: 20080115
  42. HEPARIN SODIUM 5,000 UNITS IN DEXTROSE 5% [Suspect]
     Route: 041
     Dates: start: 20080111, end: 20080114
  43. LISINOPRIL [Concomitant]
     Indication: PRODUCT USED FOR UNKNOWN INDICATION
     Route: 065
  44. BENADRYL [Concomitant]
     Indication: PRODUCT USED FOR UNKNOWN INDICATION
     Route: 065
  45. LOVENOX [Concomitant]
     Indication: PRODUCT USED FOR UNKNOWN INDICATION
     Route: 065
  46. HEPARIN SODIUM INJECTION [Suspect]
     Route: 042
     Dates: start: 20080111
  47. HEPARIN SODIUM INJECTION [Suspect]
     Route: 040
     Dates: start: 20080111
  48. HEPARIN SODIUM INJECTION [Suspect]
     Route: 040
     Dates: start: 20080111
  49. NOVOLOG [Concomitant]
     Indication: PRODUCT USED FOR UNKNOWN INDICATION
     Route: 065
  50. NITROGLYCERIN [Concomitant]
     Indication: PRODUCT USED FOR UNKNOWN INDICATION
     Route: 065
  51. PHENERGAN HCL [Concomitant]
     Indication: PRODUCT USED FOR UNKNOWN INDICATION
     Route: 065

REACTIONS (15)
  - RENAL FAILURE [None]
  - ABDOMINAL PAIN [None]
  - VOMITING [None]
  - PYREXIA [None]
  - DEEP VEIN THROMBOSIS [None]
  - POST PROCEDURAL HAEMATOMA [None]
  - PELVIC HAEMATOMA [None]
  - OEDEMA PERIPHERAL [None]
  - NAUSEA [None]
  - CORONARY ARTERY DISEASE [None]
  - HYPERKALAEMIA [None]
  - ISCHAEMIC NEUROPATHY [None]
  - MYOCARDIAL INFARCTION [None]
  - PAIN [None]
  - HYPOTENSION [None]
